FAERS Safety Report 8558026-2 (Version None)
Quarter: 2012Q3

REPORT INFORMATION
  Report Type: 
  Country: None (occurrence: None)
  Receive Date: 20120801
  Receipt Date: 20120730
  Transmission Date: 20120928
  Serious: Yes (Other)
  Sender: FDA-Public Use
  Company Number: US-PFIZER INC-2012185693

PATIENT
  Sex: Female

DRUGS (3)
  1. PRISTIQ [Suspect]
     Dosage: 100 MG, DAILY
     Route: 048
  2. XANAX [Concomitant]
     Dosage: 0.5 MG, UNK
  3. PRISTIQ [Suspect]
     Indication: DEPRESSION
     Dosage: 50 MG,DAILY
     Route: 048

REACTIONS (13)
  - SUICIDAL IDEATION [None]
  - ACTIVITIES OF DAILY LIVING IMPAIRED [None]
  - LETHARGY [None]
  - EATING DISORDER [None]
  - MOOD SWINGS [None]
  - CRYING [None]
  - HEADACHE [None]
  - INSOMNIA [None]
  - DEPRESSION [None]
  - PAIN [None]
  - DRUG INEFFECTIVE [None]
  - ANXIETY [None]
  - DRUG DOSE OMISSION [None]
